FAERS Safety Report 8968265 (Version 1)
Quarter: 2012Q4

REPORT INFORMATION
  Report Type: 
  Country: US (occurrence: US)
  Receive Date: 20121218
  Receipt Date: 20121218
  Transmission Date: 20130627
  Serious: Yes (Other)
  Sender: FDA-Public Use
  Company Number: US-SANOFI-AVENTIS-2012SA091044

PATIENT
  Sex: Male

DRUGS (4)
  1. LANTUS SOLOSTAR [Suspect]
     Dosage: Dose:59 unit(s)
     Route: 058
  2. LANTUS SOLOSTAR [Suspect]
     Dosage: Dose:44 unit(s)
     Route: 058
  3. SOLOSTAR [Suspect]
  4. HUMALOG [Concomitant]

REACTIONS (3)
  - Angiopathy [Not Recovered/Not Resolved]
  - Gait disturbance [Not Recovered/Not Resolved]
  - Weight decreased [Not Recovered/Not Resolved]
